FAERS Safety Report 21964327 (Version 2)
Quarter: 2023Q1

REPORT INFORMATION
  Report Type: Spontaneous
  Country: MX (occurrence: MX)
  Receive Date: 20230207
  Receipt Date: 20230222
  Transmission Date: 20230418
  Serious: Yes (Other)
  Sender: FDA-Public Use
  Company Number: MX-BAYER-2023P008646

PATIENT
  Age: 36 Year
  Sex: Male

DRUGS (1)
  1. LAROTRECTINIB [Suspect]
     Active Substance: LAROTRECTINIB
     Indication: Adenoid cystic carcinoma
     Dosage: 100 MG, BID
     Route: 048
     Dates: start: 202203, end: 20220831

REACTIONS (1)
  - Adenoid cystic carcinoma [Not Recovered/Not Resolved]

NARRATIVE: CASE EVENT DATE: 20220831
